FAERS Safety Report 6107351-3 (Version None)
Quarter: 2009Q1

REPORT INFORMATION
  Report Type: 
  Country: None (occurrence: None)
  Receive Date: 20090309
  Receipt Date: 20090223
  Transmission Date: 20090719
  Serious: Yes (Hospitalization, Other)
  Sender: FDA-Public Use
  Company Number: JP-PFIZER INC-2009178026

PATIENT

DRUGS (4)
  1. CHAMPIX [Suspect]
     Indication: SMOKING CESSATION THERAPY
     Dosage: UNK
     Route: 048
     Dates: start: 20081212, end: 20090212
  2. ASPIRIN [Concomitant]
  3. MYSLEE [Concomitant]
  4. CELTECT [Concomitant]

REACTIONS (7)
  - ABNORMAL BEHAVIOUR [None]
  - ANXIETY [None]
  - DELUSION [None]
  - DEPRESSION [None]
  - FEELING ABNORMAL [None]
  - HALLUCINATION, VISUAL [None]
  - INSOMNIA [None]
